FAERS Safety Report 5258353-0 (Version None)
Quarter: 2007Q1

REPORT INFORMATION
  Report Type: 
  Country: None (occurrence: None)
  Receive Date: 20070306
  Receipt Date: 20070306
  Transmission Date: 20070707
  Serious: Yes (Hospitalization)
  Sender: FDA-Public Use
  Company Number: None

PATIENT
  Age: 54 Year
  Sex: Male

DRUGS (12)
  1. CLOZAPINE [Suspect]
     Indication: SCHIZOAFFECTIVE DISORDER
     Dosage: 400MG PO QH  350 MG PO QAM
     Route: 048
     Dates: start: 20060915, end: 20070101
  2. BENZTROPINE MESYLATE [Suspect]
     Indication: EXTRAPYRAMIDAL DISORDER
     Dosage: 1 MG PO BID
     Route: 048
     Dates: start: 20060915, end: 20061130
  3. LIPITOR [Concomitant]
  4. CLONAZEPAM [Concomitant]
  5. DOCUSATE [Concomitant]
  6. CARDURA [Concomitant]
  7. GLIPIZIDE [Concomitant]
  8. TRAZODONE HCL [Concomitant]
  9. OMEPRAZOLE [Concomitant]
  10. ZOLOFT [Concomitant]
  11. METFORMIN HCL [Concomitant]
  12. LISINOPRIL [Concomitant]

REACTIONS (2)
  - ILEUS PARALYTIC [None]
  - REFUSAL OF TREATMENT BY PATIENT [None]
